FAERS Safety Report 5504019-9 (Version None)
Quarter: 2007Q4

REPORT INFORMATION
  Report Type: 
  Country: None (occurrence: None)
  Receive Date: 20071101
  Receipt Date: 20071025
  Transmission Date: 20080405
  Serious: Yes (Other)
  Sender: FDA-Public Use
  Company Number: US-JNJFOC-20071007077

PATIENT
  Sex: Male
  Weight: 10.43 kg

DRUGS (2)
  1. CONCENTRATED INFANTS TYLENOL PLUS COLD + COUGH CHERRY [Suspect]
     Indication: COUGH
     Route: 048
  2. CONCENTRATED INFANTS TYLENOL PLUS COLD + COUGH CHERRY [Suspect]
     Indication: NASAL CONGESTION
     Dosage: ^1/2 SYRINGE^
     Route: 048

REACTIONS (1)
  - RESPIRATORY DISORDER [None]
